FAERS Safety Report 8823176 (Version 1)
Quarter: 2012Q4

REPORT INFORMATION
  Report Type: 
  Country: NL (occurrence: NL)
  Receive Date: 20121003
  Receipt Date: 20121003
  Transmission Date: 20130627
  Serious: Yes (Other)
  Sender: FDA-Public Use
  Company Number: NL-PFIZER INC-2012240922

PATIENT
  Sex: Female

DRUGS (1)
  1. ATORVASTATIN PFIZER [Suspect]
     Dosage: UNK

REACTIONS (5)
  - Cardiac disorder [Unknown]
  - Cystitis [Unknown]
  - Malaise [Unknown]
  - Abnormal faeces [Unknown]
  - Pollakiuria [Unknown]
